FAERS Safety Report 9835755 (Version 3)
Quarter: 2014Q1

REPORT INFORMATION
  Report Type: Spontaneous
  Country: DK (occurrence: DK)
  Receive Date: 20140122
  Receipt Date: 20140207
  Transmission Date: 20141002
  Serious: Yes (Other)
  Sender: FDA-Public Use
  Company Number: DK-ASTRAZENECA-2013SE90443

PATIENT
  Age: 60 Year
  Sex: Female

DRUGS (5)
  1. CRESTOR [Suspect]
     Indication: BLOOD CHOLESTEROL INCREASED
     Route: 048
     Dates: start: 200902
  2. CRESTOR [Suspect]
     Indication: BLOOD CHOLESTEROL INCREASED
     Route: 048
     Dates: end: 20110310
  3. CRESTOR [Suspect]
     Indication: BLOOD CHOLESTEROL INCREASED
     Route: 048
     Dates: end: 20111222
  4. SIMVASTATIN [Suspect]
     Indication: BLOOD CHOLESTEROL INCREASED
     Route: 065
  5. SIMVASTATIN [Suspect]
     Indication: MYOCARDIAL INFARCTION
     Route: 065

REACTIONS (9)
  - Cardiac discomfort [Unknown]
  - Myocardial infarction [Unknown]
  - Musculoskeletal stiffness [Unknown]
  - Myalgia [Recovered/Resolved]
  - Arthralgia [Unknown]
  - Muscular weakness [Unknown]
  - Blood cholesterol increased [Unknown]
  - Muscle rigidity [Not Recovered/Not Resolved]
  - Drug effect incomplete [Unknown]
